FAERS Safety Report 8609112-X (Version None)
Quarter: 2012Q3

REPORT INFORMATION
  Report Type: 
  Country: None (occurrence: None)
  Receive Date: 20120821
  Receipt Date: 20120807
  Transmission Date: 20120928
  Serious: Yes (Hospitalization)
  Sender: FDA-Public Use
  Company Number: DE-UCBSA-050693

PATIENT
  Age: 71 Year
  Sex: Female
  Weight: 102 kg

DRUGS (22)
  1. CIMZIA [Suspect]
     Indication: RHEUMATOID ARTHRITIS
     Route: 058
     Dates: start: 20100601
  2. METHOTREXATE SODIUM [Suspect]
  3. METHOTREXATE SODIUM [Suspect]
     Dosage: 15
  4. FLECAINIDE ACETATE [Concomitant]
  5. METHOTREXATE SODIUM [Suspect]
  6. ALLOPURINOL [Concomitant]
  7. PANTOPRAZOLE [Concomitant]
  8. METHOTREXATE SODIUM [Suspect]
     Dates: start: 20030601
  9. METHOTREXATE SODIUM [Suspect]
     Dosage: 10.0
  10. LEFLUNOMIDE [Concomitant]
     Dates: start: 20010501, end: 20070501
  11. OLMESARTAN MEDOXOMIL [Concomitant]
     Dosage: 20/25 MG
  12. PANTOPRAZOLE [Concomitant]
  13. BISOPROLOL FUMARATE [Concomitant]
     Indication: HYPERTENSION
  14. TORSEMIDE [Concomitant]
  15. METHOTREXATE SODIUM [Suspect]
     Dosage: 7.5
     Dates: start: 20110101
  16. PREDNISOLONE [Concomitant]
  17. MARCUMAR [Concomitant]
     Dosage: 3 MG-DEPENDING ON INR
  18. MARCUMAR [Concomitant]
     Dosage: UNKNOWN DOSE
  19. METHOTREXATE SODIUM [Suspect]
     Indication: RHEUMATOID ARTHRITIS
     Dosage: 15,0 (UNSPECIFIED)
     Route: 048
     Dates: start: 20000101
  20. HYDROCHLOROTHIAZIDE [Concomitant]
     Indication: HYPERTENSION
     Dosage: DOSE :25
  21. FLECAINIDE ACETATE [Concomitant]
  22. HYDROCHLOROTHIAZIDE [Concomitant]

REACTIONS (3)
  - ATRIAL FIBRILLATION [None]
  - ISCHAEMIC STROKE [None]
  - ROTATOR CUFF SYNDROME [None]
